FAERS Safety Report 9348718 (Version 1)
Quarter: 2013Q2

REPORT INFORMATION
  Report Type: Spontaneous
  Country: US (occurrence: US)
  Receive Date: 20130614
  Receipt Date: 20130614
  Transmission Date: 20140414
  Serious: No
  Sender: FDA-Public Use
  Company Number: US-GLAXOSMITHKLINE-A0992009A

PATIENT
  Age: 74 Year
  Sex: Female

DRUGS (2)
  1. TREXIMET [Suspect]
     Indication: MIGRAINE
     Dosage: 1TAB PER DAY
     Route: 048
     Dates: start: 20120902, end: 20120902
  2. PROZAC [Concomitant]

REACTIONS (2)
  - Throat tightness [Recovered/Resolved]
  - Poor quality sleep [Unknown]
